FAERS Safety Report 13013243 (Version 1)
Quarter: 2016Q4

REPORT INFORMATION
  Report Type: Spontaneous
  Country: US (occurrence: US)
  Receive Date: 20161208
  Receipt Date: 20161208
  Transmission Date: 20170207
  Serious: No
  Sender: FDA-Public Use
  Company Number: None

PATIENT
  Age: 49 Year
  Sex: Female

DRUGS (1)
  1. GILENYA [Suspect]
     Active Substance: FINGOLIMOD HYDROCHLORIDE

REACTIONS (6)
  - Nasopharyngitis [None]
  - Nasal congestion [None]
  - Nausea [None]
  - Pain [None]
  - Pyrexia [None]
  - Rhinorrhoea [None]

NARRATIVE: CASE EVENT DATE: 20161208
